FAERS Safety Report 4668183-6 (Version None)
Quarter: 2005Q2

REPORT INFORMATION
  Report Type: 
  Country: None (occurrence: None)
  Receive Date: 20050523
  Receipt Date: 20050204
  Transmission Date: 20051028
  Serious: Yes (Other)
  Sender: FDA-Public Use
  Company Number: PHEH2005US01661

PATIENT
  Age: 71 Year
  Sex: Male

DRUGS (4)
  1. ZOMETA [Suspect]
     Indication: MULTIPLE MYELOMA
     Dosage: 4 MG, QMO
     Dates: start: 20030101, end: 20040901
  2. MELPHALAN [Concomitant]
     Dates: start: 20020901, end: 20041201
  3. PREDNISONE [Concomitant]
     Dates: start: 20020901, end: 20041201
  4. EPOGEN [Concomitant]
     Dates: start: 20021101

REACTIONS (2)
  - OSTEONECROSIS [None]
  - RENAL FAILURE [None]
